FAERS Safety Report 15239922 (Version 21)
Quarter: 2022Q1

REPORT INFORMATION
  Report Type: Report from Study
  Country: ZA (occurrence: ZA)
  Receive Date: 20180803
  Receipt Date: 20220118
  Transmission Date: 20220423
  Serious: Yes (Hospitalization, Other)
  Sender: FDA-Public Use
  Company Number: PHHY2018ZA061235

PATIENT
  Age: 32 Year
  Sex: Female

DRUGS (5)
  1. FINGOLIMOD HYDROCHLORIDE [Suspect]
     Active Substance: FINGOLIMOD HYDROCHLORIDE
     Indication: Multiple sclerosis
     Dosage: 0.5 MG, QD
     Route: 048
     Dates: start: 20180719
  2. FINGOLIMOD HYDROCHLORIDE [Suspect]
     Active Substance: FINGOLIMOD HYDROCHLORIDE
     Indication: Relapsing-remitting multiple sclerosis
     Dosage: 0.5 MG, QD
     Route: 048
     Dates: start: 20180726
  3. FINGOLIMOD HYDROCHLORIDE [Suspect]
     Active Substance: FINGOLIMOD HYDROCHLORIDE
     Dosage: 0.5 MG, QD
     Route: 048
  4. ITRACONAZOLE [Concomitant]
     Active Substance: ITRACONAZOLE
     Indication: Product used for unknown indication
     Dosage: 2 OT, QW
     Route: 065
  5. VITAMINS [Concomitant]
     Active Substance: VITAMINS
     Indication: Product used for unknown indication
     Dosage: UNK
     Route: 065

REACTIONS (40)
  - Hypoaesthesia [Unknown]
  - Hypoaesthesia oral [Unknown]
  - Concomitant disease aggravated [Unknown]
  - Chills [Unknown]
  - Feeling cold [Unknown]
  - Taste disorder [Unknown]
  - Speech disorder [Unknown]
  - Malaise [Unknown]
  - Multiple sclerosis relapse [Unknown]
  - Expanded disability status scale score increased [Unknown]
  - Lymphocyte count decreased [Unknown]
  - Balance disorder [Unknown]
  - Back pain [Unknown]
  - Headache [Not Recovered/Not Resolved]
  - Blood pressure fluctuation [Unknown]
  - Heart rate irregular [Unknown]
  - Pain [Unknown]
  - Feeling hot [Unknown]
  - Neck pain [Not Recovered/Not Resolved]
  - Bone pain [Unknown]
  - Mean cell haemoglobin increased [Unknown]
  - Pain in extremity [Unknown]
  - Hypotension [Unknown]
  - Gait disturbance [Unknown]
  - Ill-defined disorder [Unknown]
  - Anxiety [Unknown]
  - Chest discomfort [Unknown]
  - Cold sweat [Unknown]
  - Insomnia [Unknown]
  - Muscle tightness [Unknown]
  - Muscle spasticity [Unknown]
  - Gamma-glutamyltransferase increased [Unknown]
  - Alanine aminotransferase increased [Unknown]
  - Arthralgia [Unknown]
  - Migraine [Unknown]
  - Photophobia [Unknown]
  - Influenza [Recovered/Resolved]
  - Nausea [Recovering/Resolving]
  - Fatigue [Unknown]
  - White blood cell count decreased [Unknown]

NARRATIVE: CASE EVENT DATE: 20180726
